FAERS Safety Report 15752263 (Version 3)
Quarter: 2019Q1

REPORT INFORMATION
  Report Type: Report from Study
  Country: None (occurrence: FR)
  Receive Date: 20181221
  Receipt Date: 20190206
  Transmission Date: 20190417
  Serious: Yes (Life-Threatening, Hospitalization)
  Sender: FDA-Public Use
  Company Number: FR-ABBVIE-18P-056-2601325-00

PATIENT
  Age: 72 Year
  Sex: Male

DRUGS (8)
  1. NISISCO [Concomitant]
     Active Substance: HYDROCHLOROTHIAZIDE\VALSARTAN
     Indication: HYPERTENSION
  2. FLECAINE [Concomitant]
     Active Substance: FLECAINIDE
     Indication: HYPERTENSION
  3. NOCTAMIDE [Concomitant]
     Active Substance: LORMETAZEPAM
     Indication: PRODUCT USED FOR UNKNOWN INDICATION
  4. ATEZOLIZUMAB. [Concomitant]
     Active Substance: ATEZOLIZUMAB
     Indication: LYMPHOMA
     Dosage: MOST RECENT DOSE OF ATEZOLIZUMAB ON 06 DEC 2018
     Route: 065
     Dates: start: 20181114
  5. LEVOTHYROX [Concomitant]
     Active Substance: LEVOTHYROXINE
     Indication: THYROID DISORDER
  6. VENETOCLAX. [Suspect]
     Active Substance: VENETOCLAX
     Indication: DIFFUSE LARGE B-CELL LYMPHOMA
     Dosage: MOST RECENT DOSE OF VENETOCLAX ON 08 DEC 2018
     Route: 048
     Dates: start: 20181120, end: 20181210
  7. OBINUTUZUMAB. [Concomitant]
     Active Substance: OBINUTUZUMAB
     Indication: LYMPHOMA
     Dosage: MOST RECENT DOSE OF OBINUTUZUMAB 05 DEC 2018
     Dates: start: 20181113
  8. CORDARONE [Concomitant]
     Active Substance: AMIODARONE HYDROCHLORIDE
     Indication: HYPERTENSION

REACTIONS (3)
  - Abdominal abscess [Not Recovered/Not Resolved]
  - Malignant neoplasm of ampulla of Vater [Not Recovered/Not Resolved]
  - Cholangitis [Recovered/Resolved]

NARRATIVE: CASE EVENT DATE: 20181208
